FAERS Safety Report 12392809 (Version 2)
Quarter: 2016Q2

REPORT INFORMATION
  Report Type: Report from Study
  Country: US (occurrence: US)
  Receive Date: 20160523
  Receipt Date: 20160530
  Transmission Date: 20160815
  Serious: Yes (Other)
  Sender: FDA-Public Use
  Company Number: US-AMGEN-USASL2016063009

PATIENT
  Age: 63 Year
  Sex: Female
  Weight: 63.49 kg

DRUGS (17)
  1. PROZAC [Concomitant]
     Active Substance: FLUOXETINE HYDROCHLORIDE
     Dosage: 10 MG, QD
     Route: 048
  2. PANTOPRAZOLE SODIUM. [Concomitant]
     Active Substance: PANTOPRAZOLE SODIUM
     Dosage: 40 MG, QD
     Route: 048
  3. BACTRIM [Concomitant]
     Active Substance: SULFAMETHOXAZOLE\TRIMETHOPRIM
     Dosage: 800 MG TO 160 MG
     Route: 048
     Dates: start: 20151022
  4. IMITREX [Concomitant]
     Active Substance: SUMATRIPTAN SUCCINATE
     Dosage: 100 MG, UNK
     Route: 048
  5. PAREGORIC [Concomitant]
     Active Substance: MORPHINE
     Dosage: UNK UNK, AS NECESSARY
     Route: 048
  6. ZOLPIDEM [Concomitant]
     Active Substance: ZOLPIDEM\ZOLPIDEM TARTRATE
     Dosage: 10 MG, UNK
     Route: 048
  7. ZOFRAN [Concomitant]
     Active Substance: ONDANSETRON HYDROCHLORIDE
     Dosage: 4 MG, AS NECESSARY
     Route: 048
  8. REPATHA [Suspect]
     Active Substance: EVOLOCUMAB
     Indication: TYPE IIA HYPERLIPIDAEMIA
     Dosage: 140 MG/ML, Q2WK
     Route: 058
     Dates: start: 20151120
  9. IMITREX [Concomitant]
     Active Substance: SUMATRIPTAN SUCCINATE
     Dosage: 6 MG/0.5 ML
     Route: 058
  10. DIFLUCAN [Concomitant]
     Active Substance: FLUCONAZOLE
     Dosage: 150 MG, QD
     Route: 048
     Dates: start: 20151022
  11. BIAXIN [Concomitant]
     Active Substance: CLARITHROMYCIN
     Dosage: 500 MG, BID
     Route: 048
  12. SUPREP BOWEL PREP [Concomitant]
     Active Substance: MAGNESIUM SULFATE\POTASSIUM SULFATE\SODIUM SULFATE
     Route: 048
  13. PROMETHAZINE HCL AND CODEINE PHOSPHATE [Concomitant]
     Dosage: 6.25 MG, Q6H
     Route: 048
  14. DIAZEPAM. [Concomitant]
     Active Substance: DIAZEPAM
     Dosage: 5 MG, EVERY FOUR TO SIX HOURS
     Route: 048
  15. ALBUTEROL. [Concomitant]
     Active Substance: ALBUTEROL
     Dosage: 90 MUG, Q4H
     Route: 045
  16. KENALOG [Concomitant]
     Active Substance: TRIAMCINOLONE ACETONIDE
     Dosage: 40 MG/ML, UNK
  17. FLAGYL [Concomitant]
     Active Substance: METRONIDAZOLE\METRONIDAZOLE HYDROCHLORIDE
     Dosage: 250 MG, TID
     Route: 048

REACTIONS (9)
  - Influenza [Not Recovered/Not Resolved]
  - Pertussis [Not Recovered/Not Resolved]
  - Cough [Not Recovered/Not Resolved]
  - Sinus disorder [Unknown]
  - Bronchitis chronic [Unknown]
  - Upper respiratory tract infection [Not Recovered/Not Resolved]
  - Malaise [Unknown]
  - Pneumonia [Not Recovered/Not Resolved]
  - Pyrexia [Unknown]

NARRATIVE: CASE EVENT DATE: 2016
